FAERS Safety Report 18736252 (Version 2)
Quarter: 2021Q1

REPORT INFORMATION
  Report Type: Spontaneous
  Country: SE (occurrence: SE)
  Receive Date: 20210113
  Receipt Date: 20210220
  Transmission Date: 20210419
  Serious: Yes (Other)
  Sender: FDA-Public Use
  Company Number: SE-TAKEDA-2020TUS058557

PATIENT
  Age: 15 Year
  Sex: Male
  Weight: 47 kg

DRUGS (7)
  1. VPRIV [Suspect]
     Active Substance: VELAGLUCERASE ALFA
     Indication: GAUCHER^S DISEASE
     Dosage: UNK
     Route: 065
  2. VPRIV [Suspect]
     Active Substance: VELAGLUCERASE ALFA
     Dosage: UNK
     Route: 065
     Dates: start: 20201104
  3. SOLU?CORTEF [Concomitant]
     Active Substance: HYDROCORTISONE SODIUM SUCCINATE
     Indication: PRODUCT USED FOR UNKNOWN INDICATION
     Route: 065
  4. VPRIV [Suspect]
     Active Substance: VELAGLUCERASE ALFA
     Dosage: 2800E
     Route: 065
     Dates: start: 20201009
  5. ALVEDON [Concomitant]
     Active Substance: ACETAMINOPHEN
     Indication: PROPHYLAXIS
     Route: 065
  6. VPRIV [Suspect]
     Active Substance: VELAGLUCERASE ALFA
     Dosage: 1200E
     Route: 065
  7. AERIUS [EBASTINE] [Concomitant]
     Active Substance: EBASTINE
     Indication: PROPHYLAXIS
     Route: 065

REACTIONS (5)
  - Urticaria [Recovered/Resolved]
  - Infusion related reaction [Unknown]
  - Ill-defined disorder [Recovered/Resolved]
  - Oxygen saturation decreased [Recovered/Resolved]
  - Speech disorder [Recovered/Resolved]
